FAERS Safety Report 7965247-6 (Version None)
Quarter: 2011Q4

REPORT INFORMATION
  Report Type: 
  Country: None (occurrence: None)
  Receive Date: 20111205
  Receipt Date: 20111125
  Transmission Date: 20120403
  Serious: Yes (Hospitalization)
  Sender: FDA-Public Use
  Company Number: LEO-2011-01045

PATIENT
  Age: 72 Year
  Sex: Male
  Weight: 75 kg

DRUGS (10)
  1. MOVICOL (SODIUM BICARBONATE, POTASSIUM CHLORIDE, MACROGOL) [Concomitant]
  2. PANTOLOC (PANTOPRAZOLE SODIUM SESQUIHYDRATE) [Concomitant]
  3. OXAZEPAM [Concomitant]
  4. UNIKALK FORTE (CALCIUM) [Concomitant]
  5. SPIRIVA [Concomitant]
  6. FORTEO [Concomitant]
  7. INNOHEP [Suspect]
     Indication: DEEP VEIN THROMBOSIS
     Dosage: (10000 IU,1 IN 1 D),SUBCUTANEOUS
     Route: 058
     Dates: start: 20101122, end: 20101202
  8. PINEX (PARACETAMOL) [Concomitant]
  9. DURAGESIC-100 [Concomitant]
  10. TOILAX (BISACODYL) [Concomitant]

REACTIONS (3)
  - ABDOMINAL PAIN [None]
  - NAUSEA [None]
  - VOMITING [None]
